FAERS Safety Report 18973421 (Version 2)
Quarter: 2022Q3

REPORT INFORMATION
  Report Type: Spontaneous
  Country: CH (occurrence: CH)
  Receive Date: 20210305
  Receipt Date: 20220712
  Transmission Date: 20221027
  Serious: Yes (Life-Threatening)
  Sender: FDA-Public Use
  Company Number: CH-GSKCCFEMEA-CASE-01148781_AE-40817

PATIENT

DRUGS (1)
  1. ZEJULA [Suspect]
     Active Substance: NIRAPARIB
     Indication: Product used for unknown indication
     Dosage: UNK

REACTIONS (3)
  - Disease progression [Not Recovered/Not Resolved]
  - General physical health deterioration [Unknown]
  - Product use complaint [Unknown]
